FAERS Safety Report 9153831 (Version 1)
Quarter: 2013Q1

REPORT INFORMATION
  Report Type: Spontaneous
  Country: US (occurrence: None)
  Receive Date: 20130308
  Receipt Date: 20130308
  Transmission Date: 20140127
  Serious: Yes (Other)
  Sender: FDA-Public Use
  Company Number: None

PATIENT
  Sex: Female
  Weight: 85.73 kg

DRUGS (2)
  1. LEVAQUIN [Suspect]
     Dosage: LEVAQUIN 750 MG DAILY ORAL
     Route: 048
     Dates: start: 20130215, end: 20130217
  2. SUDAFED [Concomitant]

REACTIONS (1)
  - Arthralgia [None]
